FAERS Safety Report 10786038 (Version 1)
Quarter: 2015Q1

REPORT INFORMATION
  Report Type: Report from Study
  Country: US (occurrence: US)
  Receive Date: 20150211
  Receipt Date: 20150211
  Transmission Date: 20150721
  Serious: Yes (Other)
  Sender: FDA-Public Use
  Company Number: PHEH2014US024385

PATIENT
  Sex: Male
  Weight: 84 kg

DRUGS (2)
  1. GLEEVEC [Suspect]
     Active Substance: IMATINIB MESYLATE
     Indication: NEOPLASM MALIGNANT
     Route: 065
  2. GLEEVEC [Suspect]
     Active Substance: IMATINIB MESYLATE
     Indication: GASTROINTESTINAL STROMAL TUMOUR

REACTIONS (10)
  - Ascites [Unknown]
  - Oedema [Unknown]
  - Bladder transitional cell carcinoma [Unknown]
  - Constipation [Unknown]
  - Concomitant disease progression [Unknown]
  - Pleural effusion [Unknown]
  - Haematuria [Unknown]
  - Intestinal obstruction [Unknown]
  - Metastases to liver [Unknown]
  - Weight increased [Unknown]

NARRATIVE: CASE EVENT DATE: 2012
